FAERS Safety Report 15441769 (Version 1)
Quarter: 2018Q3

REPORT INFORMATION
  Report Type: Spontaneous
  Country: US (occurrence: US)
  Receive Date: 20180928
  Receipt Date: 20180928
  Transmission Date: 20181010
  Serious: Yes (Other)
  Sender: FDA-Public Use
  Company Number: US-LPDUSPRD-20181791

PATIENT
  Age: 37 Year

DRUGS (10)
  1. DACARBAZINE. [Suspect]
     Active Substance: DACARBAZINE
     Dosage: UNKNOWN
     Route: 065
  2. IFOSFAMIDE. [Suspect]
     Active Substance: IFOSFAMIDE
     Dosage: UNKNOWN
     Route: 065
  3. CARBOPLATIN. [Suspect]
     Active Substance: CARBOPLATIN
     Dosage: UNKNOWN
     Route: 065
  4. CYCLOPHOSPHAMIDE. [Suspect]
     Active Substance: CYCLOPHOSPHAMIDE
     Dosage: UNKNOWN
     Route: 065
  5. BLEOMYCIN [Suspect]
     Active Substance: BLEOMYCIN SULFATE
     Dosage: UNKNOWN
     Route: 065
  6. ETOPOSIDE. [Suspect]
     Active Substance: ETOPOSIDE
     Dosage: UNKNOWN
     Route: 065
  7. RADIATION THERAPY [Suspect]
     Active Substance: RADIATION THERAPY
     Dosage: UNKNOWN
     Route: 065
  8. VINBLASTINE [Suspect]
     Active Substance: VINBLASTINE
     Dosage: UNKNOWN
     Route: 065
  9. BUSULFAN INJECTION (0517?0920?01) [Suspect]
     Active Substance: BUSULFAN
     Dosage: UNKNOWN
     Route: 065
  10. DOXORUBICIN [Suspect]
     Active Substance: DOXORUBICIN
     Dosage: UNKNOWN
     Route: 065

REACTIONS (1)
  - Myelitis [Unknown]
